FAERS Safety Report 6085914-1 (Version None)
Quarter: 2009Q1

REPORT INFORMATION
  Report Type: 
  Country: None (occurrence: None)
  Receive Date: 20090220
  Receipt Date: 20090213
  Transmission Date: 20090719
  Serious: Yes (Hospitalization)
  Sender: FDA-Public Use
  Company Number: US-CELGENEUS-163-21880-09020931

PATIENT
  Sex: Female
  Weight: 60.5 kg

DRUGS (8)
  1. REVLIMID [Suspect]
     Route: 048
     Dates: start: 20070918, end: 20081219
  2. REVLIMID [Suspect]
     Dosage: AFTER 3 MTHS AT 10 MG/DAY AND IF ANC }/= 1000 MCL, PLATELET COUNT }/= 7500 MCL AND ALL NON-HEM TOXIC
     Route: 048
     Dates: start: 20070918, end: 20081219
  3. REVLIMID [Suspect]
     Dosage: 15 MG , AFTER 3 MTHS AT 10 MG/DAY AND IF ANC }/= 1000 MCL, PLATELET COUNT }/= 7500 MCL AND ALL NON-H
     Route: 048
     Dates: start: 20070530
  4. ASPIRIN [Concomitant]
     Indication: DRUG USE FOR UNKNOWN INDICATION
     Route: 065
  5. ATENOLOL [Concomitant]
     Indication: DRUG USE FOR UNKNOWN INDICATION
     Route: 065
  6. NORVASC [Concomitant]
     Indication: DRUG USE FOR UNKNOWN INDICATION
     Route: 065
  7. VALTREX [Concomitant]
     Indication: DRUG USE FOR UNKNOWN INDICATION
     Route: 065
  8. DICYCLOMINE [Concomitant]
     Indication: DRUG USE FOR UNKNOWN INDICATION
     Route: 065

REACTIONS (1)
  - APPENDICITIS [None]
